FAERS Safety Report 5122713-9 (Version None)
Quarter: 2006Q4

REPORT INFORMATION
  Report Type: 
  Country: None (occurrence: None)
  Receive Date: 20061004
  Receipt Date: 20060927
  Transmission Date: 20070319
  Serious: Yes (Life-Threatening, Hospitalization)
  Sender: FDA-Public Use
  Company Number: TCI2006A03492

PATIENT
  Age: 71 Year
  Sex: Female

DRUGS (6)
  1. ACTOS [Suspect]
     Indication: DIABETES MELLITUS NON-INSULIN-DEPENDENT
     Dosage: 30 MG (30 MG, 1 IN 1 D) PER ORAL
     Route: 048
     Dates: start: 20060606, end: 20060617
  2. BASEN (VOGLIBOSE) [Concomitant]
  3. THEO-SLOW (THEOPHYLLINE) [Concomitant]
  4. PROCATEROL HCL [Concomitant]
  5. PREDNISOLONE [Concomitant]
  6. AMARYL [Concomitant]

REACTIONS (20)
  - ALANINE AMINOTRANSFERASE INCREASED [None]
  - ASPARTATE AMINOTRANSFERASE INCREASED [None]
  - ASTHMA [None]
  - BLOOD ALKALINE PHOSPHATASE INCREASED [None]
  - BLOOD LACTATE DEHYDROGENASE INCREASED [None]
  - CARDIAC FAILURE [None]
  - CHEST X-RAY ABNORMAL [None]
  - CHRONIC RESPIRATORY FAILURE [None]
  - CONDITION AGGRAVATED [None]
  - COR PULMONALE [None]
  - CREPITATIONS [None]
  - DIABETES MELLITUS INADEQUATE CONTROL [None]
  - DIFFUSE PANBRONCHIOLITIS [None]
  - EMPHYSEMA [None]
  - FACE OEDEMA [None]
  - HEPATIC CONGESTION [None]
  - OEDEMA PERIPHERAL [None]
  - PULMONARY OEDEMA [None]
  - RESPIRATORY ACIDOSIS [None]
  - WEIGHT INCREASED [None]
